FAERS Safety Report 17086624 (Version 1)
Quarter: 2019Q4

REPORT INFORMATION
  Report Type: Spontaneous
  Country: SE (occurrence: SE)
  Receive Date: 20191128
  Receipt Date: 20191128
  Transmission Date: 20200122
  Serious: Yes (Hospitalization, Other)
  Sender: FDA-Public Use
  Company Number: SE-SA-2019SA326823

PATIENT
  Age: 43 Year
  Sex: Male

DRUGS (3)
  1. PROMETHAZINE HYDROCHLORIDE. [Suspect]
     Active Substance: PROMETHAZINE HYDROCHLORIDE
     Dosage: UNK UNK, UNK
     Route: 048
     Dates: start: 20180306, end: 20180306
  2. STILNOCT [Suspect]
     Active Substance: ZOLPIDEM TARTRATE
     Dosage: 100 MG
     Route: 048
     Dates: start: 20180306, end: 20180306
  3. MELATONIN [Suspect]
     Active Substance: MELATONIN
     Dosage: UNK UNK, UNK
     Route: 048
     Dates: start: 20180306, end: 20180306

REACTIONS (2)
  - Intentional self-injury [Unknown]
  - Intentional overdose [Unknown]

NARRATIVE: CASE EVENT DATE: 20180306
